FAERS Safety Report 17703179 (Version 1)
Quarter: 2020Q2

REPORT INFORMATION
  Report Type: Spontaneous
  Country: US (occurrence: US)
  Receive Date: 20200423
  Receipt Date: 20200423
  Transmission Date: 20200714
  Serious: Yes (Other)
  Sender: FDA-Public Use
  Company Number: US-GILEAD-2020-0460824

PATIENT
  Age: 70 Year
  Sex: Male

DRUGS (4)
  1. CALTRATE [Suspect]
     Active Substance: CALCIUM CARBONATE
     Indication: OSTEOPOROSIS
     Route: 065
  2. NORVIR [Concomitant]
     Active Substance: RITONAVIR
  3. INVIRASE [Concomitant]
     Active Substance: SAQUINAVIR MESYLATE
  4. TRUVADA [Suspect]
     Active Substance: EMTRICITABINE\TENOFOVIR DISOPROXIL FUMARATE
     Indication: PRODUCT USED FOR UNKNOWN INDICATION
     Route: 065

REACTIONS (3)
  - Osteoporosis [Not Recovered/Not Resolved]
  - Diarrhoea [Unknown]
  - Osteopenia [Not Recovered/Not Resolved]
